FAERS Safety Report 6104570-7 (Version None)
Quarter: 2009Q1

REPORT INFORMATION
  Report Type: 
  Country: None (occurrence: None)
  Receive Date: 20090302
  Receipt Date: 20090213
  Transmission Date: 20090719
  Serious: Yes (Death)
  Sender: FDA-Public Use
  Company Number: B0560837A

PATIENT
  Age: 62 Year
  Sex: Female

DRUGS (2)
  1. CEFUROXIME SODIUM [Suspect]
  2. NYSTATIN [Suspect]

REACTIONS (3)
  - ACUTE RESPIRATORY DISTRESS SYNDROME [None]
  - HEPATIC FAILURE [None]
  - LIVER INJURY [None]
